FAERS Safety Report 6171939-4 (Version None)
Quarter: 2009Q2

REPORT INFORMATION
  Report Type: 
  Country: None (occurrence: None)
  Receive Date: 20090429
  Receipt Date: 20090422
  Transmission Date: 20091009
  Serious: Yes (Other)
  Sender: FDA-Public Use
  Company Number: US-ASTRAZENECA-2009UW10010

PATIENT
  Age: 68 Year
  Sex: Female

DRUGS (3)
  1. SEROQUEL [Suspect]
     Route: 048
  2. CLOZAPINE [Suspect]
     Indication: PARANOID PERSONALITY DISORDER
  3. CLOZAPINE [Suspect]

REACTIONS (2)
  - CONVULSION [None]
  - GENERAL PHYSICAL HEALTH DETERIORATION [None]
